FAERS Safety Report 25025526 (Version 4)
Quarter: 2025Q2

REPORT INFORMATION
  Report Type: Spontaneous
  Country: LT (occurrence: LT)
  Receive Date: 20250228
  Receipt Date: 20250605
  Transmission Date: 20250716
  Serious: Yes (Other)
  Sender: INTERCHEM
  Company Number: LT-SUN PHARMACEUTICAL INDUSTRIES LTD-2025RR-490069

PATIENT
  Age: 29 Year
  Sex: Female

DRUGS (19)
  1. DEXMEDETOMIDINE HYDROCHLORIDE [Suspect]
     Active Substance: DEXMEDETOMIDINE HYDROCHLORIDE
     Indication: Sedation
     Route: 065
     Dates: start: 202012
  2. MEROPENEM [Suspect]
     Active Substance: MEROPENEM
     Indication: Antibiotic therapy
     Route: 065
     Dates: start: 20201219, end: 202012
  3. FLUCONAZOLE [Suspect]
     Active Substance: FLUCONAZOLE
     Indication: Antifungal treatment
     Route: 065
     Dates: start: 20201226, end: 202101
  4. AMOXICILLIN\CLAVULANIC ACID [Suspect]
     Active Substance: AMOXICILLIN\CLAVULANIC ACID
     Indication: Antibiotic therapy
     Route: 065
  5. OMEPRAZOLE [Suspect]
     Active Substance: OMEPRAZOLE
     Indication: Prophylaxis against gastrointestinal ulcer
     Route: 065
     Dates: start: 202012
  6. OMEPRAZOLE [Suspect]
     Active Substance: OMEPRAZOLE
     Indication: Prophylaxis
  7. NOREPINEPHRINE [Suspect]
     Active Substance: NOREPINEPHRINE
     Indication: Haemodynamic instability
     Route: 065
     Dates: start: 20201219, end: 202012
  8. IBUPROFEN [Suspect]
     Active Substance: IBUPROFEN
     Indication: Pain
     Route: 065
  9. DICLOFENAC [Suspect]
     Active Substance: DICLOFENAC
     Indication: Pain
     Route: 065
  10. LORAZEPAM [Suspect]
     Active Substance: LORAZEPAM
     Indication: Anxiety
     Route: 065
  11. LORAZEPAM [Suspect]
     Active Substance: LORAZEPAM
     Indication: Insomnia
  12. MORPHINE [Suspect]
     Active Substance: MORPHINE
     Indication: Sedation
     Route: 065
     Dates: start: 202012
  13. PROPOFOL [Suspect]
     Active Substance: PROPOFOL
     Indication: Sedation
     Route: 065
     Dates: start: 202012
  14. METOPROLOL [Suspect]
     Active Substance: METOPROLOL
     Indication: Hypertension
     Route: 065
     Dates: start: 202012
  15. BROMOCRIPTINE [Suspect]
     Active Substance: BROMOCRIPTINE
     Indication: Lactation insufficiency
     Route: 065
     Dates: start: 20201221, end: 202101
  16. VANCOMYCIN HYDROCHLORIDE [Suspect]
     Active Substance: VANCOMYCIN HYDROCHLORIDE
     Indication: Antibiotic therapy
     Route: 065
     Dates: start: 20201219, end: 202012
  17. DEXAMETHASONE [Suspect]
     Active Substance: DEXAMETHASONE
     Indication: Product used for unknown indication
     Route: 065
     Dates: start: 20201219, end: 202012
  18. DIPRIVAN [Suspect]
     Active Substance: PROPOFOL
     Indication: Sedation
     Route: 065
  19. DECADRON (DEXAMETHASONE SODIUM PHOSPHATE) [Suspect]
     Active Substance: DEXAMETHASONE SODIUM PHOSPHATE
     Indication: Product used for unknown indication
     Route: 065
     Dates: start: 20201219, end: 202012

REACTIONS (1)
  - Exposure during pregnancy [Unknown]

NARRATIVE: CASE EVENT DATE: 20201219
